FAERS Safety Report 6275587-7 (Version None)
Quarter: 2009Q3

REPORT INFORMATION
  Report Type: 
  Country: None (occurrence: None)
  Receive Date: 20090721
  Receipt Date: 20090709
  Transmission Date: 20100115
  Serious: Yes (Other)
  Sender: FDA-Public Use
  Company Number: FR-ELI_LILLY_AND_COMPANY-FR200902000347

PATIENT
  Age: 74 Year
  Sex: Female

DRUGS (9)
  1. BYETTA [Suspect]
     Indication: TYPE 2 DIABETES MELLITUS
     Dosage: 5 UG, 2/D
     Route: 058
     Dates: start: 20090121, end: 20090127
  2. COAPROVEL [Concomitant]
     Indication: HYPERTENSION
     Dosage: 300 MG, DAILY (1/D)
     Route: 048
  3. SELOKEN [Concomitant]
     Indication: HYPERTENSION
     Dosage: 1.5 D/F, DAILY (1/D)
     Route: 048
  4. LERCAN [Concomitant]
     Indication: HYPERTENSION
     Dosage: 10 MG, DAILY (1/D)
     Route: 048
     Dates: start: 20080903
  5. ELISOR [Concomitant]
     Indication: HYPERLIPIDAEMIA
     Dosage: 20 MG, DAILY (1/D)
     Route: 048
  6. AMAREL [Concomitant]
     Indication: TYPE 2 DIABETES MELLITUS
     Dosage: 4 MG, DAILY (1/D)
     Route: 048
  7. AVANDIA [Concomitant]
     Indication: TYPE 2 DIABETES MELLITUS
     Dosage: 4 MG, DAILY (1/D)
     Route: 048
  8. TOCO [Concomitant]
     Dosage: 500 MG, DAILY (1/D)
     Route: 048
  9. GANFORT [Concomitant]
     Indication: GLAUCOMA
     Dosage: UNK, UNKNOWN
     Route: 065

REACTIONS (4)
  - DIPLOPIA [None]
  - EXOPHTHALMOS [None]
  - HETEROPHORIA [None]
  - VISION BLURRED [None]
